FAERS Safety Report 17631798 (Version 1)
Quarter: 2020Q2

REPORT INFORMATION
  Report Type: Spontaneous
  Country: US (occurrence: US)
  Receive Date: 20200406
  Receipt Date: 20200406
  Transmission Date: 20200713
  Serious: No
  Sender: FDA-Public Use
  Company Number: None

PATIENT
  Age: 66 Year
  Sex: Female
  Weight: 80.24 kg

DRUGS (11)
  1. ZOLEDRONIC ACID 4MG/ 100ML IV [Concomitant]
  2. PROBIOTIC ACIDOPHILUS, ORAL [Concomitant]
  3. LISINOPRIL 10MG, ORAL [Concomitant]
  4. IBRANCE [Suspect]
     Active Substance: PALBOCICLIB
     Indication: BREAST CANCER
     Route: 048
     Dates: start: 20200207, end: 20200406
  5. ADVIL, 200MG, ORAL [Concomitant]
  6. VITAMIN C 500MG, ORAL [Concomitant]
  7. GLUCOSAMINE CHONDROTIN 1500MG, ORAL [Concomitant]
  8. CITRACEL PETITIES/VITAMIN D 200-250MG, ORAL [Concomitant]
  9. XVEGA 120MG/1.7ML SQ [Concomitant]
  10. LETROZOLE 2.5 MG, ORAL [Concomitant]
  11. IBRANCE 125 MG, ORAL [Concomitant]
     Dates: start: 20200207, end: 20200217

REACTIONS (1)
  - Neutropenia [None]

NARRATIVE: CASE EVENT DATE: 20200406
